FAERS Safety Report 20113247 (Version 2)
Quarter: 2022Q2

REPORT INFORMATION
  Report Type: Spontaneous
  Country: US (occurrence: US)
  Receive Date: 20211125
  Receipt Date: 20220519
  Transmission Date: 20220720
  Serious: No
  Sender: FDA-Public Use
  Company Number: US-PFIZER INC-2020347781

PATIENT
  Age: 89 Year
  Sex: Female

DRUGS (4)
  1. LATANOPROST [Suspect]
     Active Substance: LATANOPROST
     Dosage: UNK
  2. LATANOPROST [Suspect]
     Active Substance: LATANOPROST
     Dosage: UNK
  3. LATANOPROST [Suspect]
     Active Substance: LATANOPROST
     Dosage: UNK
  4. LATANOPROST [Suspect]
     Active Substance: LATANOPROST
     Dosage: UNK

REACTIONS (5)
  - Poor quality product administered [Unknown]
  - Product container seal issue [Unknown]
  - Overdose [Unknown]
  - Device delivery system issue [Unknown]
  - Eye irritation [Unknown]

NARRATIVE: CASE EVENT DATE: 20211025
